FAERS Safety Report 5582691-5 (Version None)
Quarter: 2008Q1

REPORT INFORMATION
  Report Type: 
  Country: None (occurrence: None)
  Receive Date: 20080107
  Receipt Date: 20071220
  Transmission Date: 20080703
  Serious: Yes (Hospitalization, Other)
  Sender: FDA-Public Use
  Company Number: IT-BAYER-200715262GDS

PATIENT
  Age: 63 Year
  Sex: Male
  Weight: 88 kg

DRUGS (37)
  1. SORAFENIB [Suspect]
     Indication: NON-SMALL CELL LUNG CANCER
     Dosage: TOTAL DAILY DOSE: 800 MG
     Route: 048
     Dates: start: 20070719, end: 20071003
  2. GEMCITABINE [Suspect]
     Indication: NON-SMALL CELL LUNG CANCER
     Route: 042
     Dates: start: 20070906, end: 20070906
  3. GEMCITABINE [Suspect]
     Route: 042
     Dates: start: 20070913, end: 20070913
  4. GEMCITABINE [Suspect]
     Route: 042
     Dates: start: 20070816, end: 20070816
  5. GEMCITABINE [Suspect]
     Route: 042
     Dates: start: 20070927, end: 20070927
  6. GEMCITABINE [Suspect]
     Route: 042
     Dates: start: 20070719, end: 20070719
  7. GEMCITABINE [Suspect]
     Route: 042
     Dates: start: 20070726, end: 20070726
  8. CISPLATIN [Suspect]
     Indication: NON-SMALL CELL LUNG CANCER
     Route: 042
     Dates: start: 20070927, end: 20070927
  9. CISPLATIN [Suspect]
     Route: 042
     Dates: start: 20070906, end: 20070906
  10. CISPLATIN [Suspect]
     Route: 042
     Dates: start: 20070816, end: 20070816
  11. CISPLATIN [Suspect]
     Route: 042
     Dates: start: 20070719, end: 20070719
  12. NAVOBAN [Concomitant]
     Indication: PROPHYLAXIS OF NAUSEA AND VOMITING
     Route: 048
     Dates: start: 20070721, end: 20070723
  13. NAVOBAN [Concomitant]
     Route: 048
     Dates: start: 20070911, end: 20070913
  14. NAVOBAN [Concomitant]
     Route: 048
     Dates: start: 20070818, end: 20070820
  15. NAVOBAN [Concomitant]
     Route: 048
     Dates: start: 20070929, end: 20071001
  16. PLASIL [Concomitant]
     Indication: PROPHYLAXIS OF NAUSEA AND VOMITING
     Route: 048
     Dates: start: 20070911, end: 20070917
  17. PLASIL [Concomitant]
     Route: 048
     Dates: start: 20070818, end: 20070821
  18. PLASIL [Concomitant]
     Route: 048
     Dates: start: 20070721, end: 20070724
  19. PLASIL [Concomitant]
     Route: 048
     Dates: start: 20070929, end: 20071005
  20. CONTRAMAL [Concomitant]
     Indication: PAIN PROPHYLAXIS
     Route: 065
     Dates: end: 20070726
  21. MS CONTIN [Concomitant]
     Indication: PAIN PROPHYLAXIS
     Route: 065
     Dates: start: 20070726
  22. GLYSENNID [Concomitant]
     Indication: CONSTIPATION
     Route: 048
     Dates: start: 20070726, end: 20070823
  23. SELEPARINA [Concomitant]
     Indication: THROMBOSIS PROPHYLAXIS
     Route: 065
     Dates: start: 20070709
  24. NEXIUM [Concomitant]
     Indication: PROPHYLAXIS
     Route: 065
     Dates: start: 20070726
  25. BRUFEN [Concomitant]
     Indication: PAIN PROPHYLAXIS
     Route: 065
     Dates: start: 20070726
  26. LOPERAMIDE HCL [Concomitant]
     Indication: DIARRHOEA
     Route: 065
     Dates: start: 20070730, end: 20070801
  27. MYCOSTATIN [Concomitant]
     Indication: ORAL FUNGAL INFECTION
     Route: 065
     Dates: start: 20070730, end: 20070814
  28. CORSODYL [Concomitant]
     Indication: ORAL FUNGAL INFECTION
     Route: 048
     Dates: start: 20070818
  29. EFFEXOR [Concomitant]
     Indication: ANXIETY
     Route: 065
     Dates: start: 20070818
  30. METFORMINA [Concomitant]
     Indication: DIABETES MELLITUS
     Route: 065
     Dates: start: 20050101
  31. CRESTOR [Concomitant]
     Indication: HYPERCHOLESTEROLAEMIA
     Route: 065
     Dates: start: 20050701
  32. POTASSIUM CLORURO [Concomitant]
     Indication: MINERAL SUPPLEMENTATION
     Route: 065
     Dates: start: 20070929
  33. POTASSIUM CLORURO [Concomitant]
     Route: 065
     Dates: start: 20070911, end: 20070913
  34. CALCIUM CARBONATE [Concomitant]
     Indication: SUPPLEMENTATION THERAPY
     Dates: start: 20070911
  35. LEVOFLOXACIN [Concomitant]
     Indication: ANTIBIOTIC THERAPY
     Route: 065
     Dates: start: 20070929, end: 20071005
  36. MAGNESIUM [Concomitant]
     Indication: HYPOMAGNESAEMIA
     Route: 065
     Dates: start: 20070929, end: 20070930
  37. MAGNESIUM [Concomitant]
     Route: 065
     Dates: start: 20071012, end: 20071019

REACTIONS (4)
  - HYPOCALCAEMIA [None]
  - HYPOKALAEMIA [None]
  - HYPONATRAEMIA [None]
  - HYPOPHOSPHATAEMIA [None]
